FAERS Safety Report 6662297-7 (Version None)
Quarter: 2010Q1

REPORT INFORMATION
  Report Type: 
  Country: None (occurrence: None)
  Receive Date: 20100322
  Receipt Date: 20100302
  Transmission Date: 20100710
  Serious: No
  Sender: FDA-Public Use
  Company Number: 2010-00306

PATIENT
  Age: 14 Year
  Sex: Male
  Weight: 54.4316 kg

DRUGS (1)
  1. ZICAM COLD REMEDY NASAL GEL [Suspect]
     Dosage: SPORADIC USE - SPORADIC : YEARS AGO

REACTIONS (1)
  - ANOSMIA [None]
